FAERS Safety Report 17072883 (Version 1)
Quarter: 2019Q4

REPORT INFORMATION
  Report Type: Spontaneous
  Country: US (occurrence: US)
  Receive Date: 20191125
  Receipt Date: 20191125
  Transmission Date: 20200122
  Serious: No
  Sender: FDA-Public Use
  Company Number: US-BAUSCH-BL-2019-060769

PATIENT
  Sex: Female

DRUGS (3)
  1. RETIN-A [Suspect]
     Active Substance: TRETINOIN
     Indication: ACNE
     Route: 061
     Dates: start: 2019
  2. HYDROCORTISONE CREAM [Suspect]
     Active Substance: HYDROCORTISONE
     Indication: PAIN
     Route: 065
     Dates: start: 201907, end: 2019
  3. HYDROCORTISONE CREAM [Suspect]
     Active Substance: HYDROCORTISONE
     Indication: PRURITUS
     Route: 065
     Dates: start: 201908

REACTIONS (6)
  - Erythema [Unknown]
  - Acne [Unknown]
  - Eye pain [Unknown]
  - Skin exfoliation [Unknown]
  - Skin burning sensation [Unknown]
  - Pruritus [Unknown]

NARRATIVE: CASE EVENT DATE: 2019
